FAERS Safety Report 5518697-1 (Version None)
Quarter: 2007Q4

REPORT INFORMATION
  Report Type: 
  Country: None (occurrence: None)
  Receive Date: 20071115
  Receipt Date: 20071106
  Transmission Date: 20080405
  Serious: Yes (Hospitalization, Other)
  Sender: FDA-Public Use
  Company Number: US-SHR-US-2007-026985

PATIENT
  Age: 25 Year
  Sex: Female
  Weight: 68.027 kg

DRUGS (3)
  1. BETASERON [Suspect]
     Indication: RELAPSING-REMITTING MULTIPLE SCLEROSIS
     Dosage: 8 MIU, EVERY 2D
     Route: 058
     Dates: start: 20060419, end: 20070501
  2. LYRICA [Concomitant]
  3. AZATHIOPRINE [Concomitant]
     Dates: start: 20070701

REACTIONS (8)
  - ACUTE HEPATIC FAILURE [None]
  - ASTHENIA [None]
  - CONVULSION [None]
  - HEADACHE [None]
  - HEPATOCELLULAR DAMAGE [None]
  - MOBILITY DECREASED [None]
  - PYREXIA [None]
  - VOMITING [None]
